FAERS Safety Report 25619039 (Version 1)
Quarter: 2025Q3

REPORT INFORMATION
  Report Type: Spontaneous
  Country: SG (occurrence: SG)
  Receive Date: 20250729
  Receipt Date: 20250729
  Transmission Date: 20251021
  Serious: Yes (Other)
  Sender: Kenvue
  Company Number: SG-GSK-SG2025APC092051

PATIENT

DRUGS (1)
  1. CETIRIZINE HYDROCHLORIDE [Suspect]
     Active Substance: CETIRIZINE HYDROCHLORIDE
     Indication: Product used for unknown indication
     Route: 065

REACTIONS (2)
  - Genital rash [Unknown]
  - Rash [Unknown]

NARRATIVE: CASE EVENT DATE: 20220101
